FAERS Safety Report 9858902 (Version 1)
Quarter: 2014Q1

REPORT INFORMATION
  Report Type: Spontaneous
  Country: AR (occurrence: AR)
  Receive Date: 20140131
  Receipt Date: 20140131
  Transmission Date: 20141002
  Serious: Yes (Other)
  Sender: FDA-Public Use
  Company Number: CHPA2014AR001414

PATIENT
  Age: 19 Year
  Sex: Male

DRUGS (1)
  1. NICOTINELL [Suspect]
     Indication: OFF LABEL USE
     Dosage: 10-12 DF/PER DAY
     Route: 048
     Dates: start: 20140120

REACTIONS (1)
  - Syncope [Unknown]
